FAERS Safety Report 14987984 (Version 1)
Quarter: 2018Q2

REPORT INFORMATION
  Report Type: Spontaneous
  Country: US (occurrence: US)
  Receive Date: 20180516
  Receipt Date: 20180516
  Transmission Date: 20180711
  Serious: Yes (Life-Threatening, Hospitalization, Disabling)
  Sender: FDA-Public Use
  Company Number: None

PATIENT
  Age: 28 Year
  Sex: Female
  Weight: 68.04 kg

DRUGS (1)
  1. MIRENA [Suspect]
     Active Substance: LEVONORGESTREL
     Dates: start: 20171120, end: 20180410

REACTIONS (4)
  - Feeling hot [None]
  - Breast pain [None]
  - Breast mass [None]
  - Breast cancer [None]

NARRATIVE: CASE EVENT DATE: 20171219
